FAERS Safety Report 6910379-4 (Version None)
Quarter: 2010Q3

REPORT INFORMATION
  Report Type: 
  Country: None (occurrence: None)
  Receive Date: 20100806
  Receipt Date: 20100728
  Transmission Date: 20110219
  Serious: Yes (Hospitalization)
  Sender: FDA-Public Use
  Company Number: FR-ASTRAZENECA-2010SE35237

PATIENT
  Age: 80 Year
  Sex: Male

DRUGS (8)
  1. CRESTOR [Suspect]
     Route: 048
     Dates: start: 20100301, end: 20100611
  2. ACETAMINOPHEN [Concomitant]
  3. CLONAZEPAM [Concomitant]
  4. TRAMADOL HCL [Concomitant]
  5. TEMERIT [Concomitant]
  6. PERINDOPRIL ERBUMINE [Concomitant]
  7. KARDEGIC [Concomitant]
  8. MYOLASTAN [Concomitant]

REACTIONS (1)
  - HEPATIC ENZYME INCREASED [None]
